FAERS Safety Report 8008843-2 (Version None)
Quarter: 2011Q4

REPORT INFORMATION
  Report Type: 
  Country: None (occurrence: None)
  Receive Date: 20111227
  Receipt Date: 20111222
  Transmission Date: 20120403
  Serious: No
  Sender: FDA-Public Use
  Company Number: US-BAYER-2011-123423

PATIENT
  Age: 33 Year
  Sex: Female

DRUGS (1)
  1. MIRENA [Suspect]
     Indication: CONTRACEPTION
     Dosage: 20 MCG/24HR, CONT
     Route: 015
     Dates: start: 20111102

REACTIONS (6)
  - BACK PAIN [None]
  - GINGIVAL BLEEDING [None]
  - PAIN IN EXTREMITY [None]
  - FATIGUE [None]
  - ANXIETY [None]
  - ABDOMINAL PAIN [None]
